FAERS Safety Report 13012277 (Version 1)
Quarter: 2016Q4

REPORT INFORMATION
  Report Type: Spontaneous
  Country: US (occurrence: US)
  Receive Date: 20161209
  Receipt Date: 20161209
  Transmission Date: 20170207
  Serious: Yes (Disabling)
  Sender: FDA-Public Use
  Company Number: None

PATIENT
  Age: 65 Year
  Sex: Male
  Weight: 74.46 kg

DRUGS (5)
  1. COLESTIPOL HCL 1GM TAB [Suspect]
     Active Substance: COLESTIPOL HYDROCHLORIDE
     Indication: BLOOD CHOLESTEROL INCREASED
     Dosage: ?          QUANTITY:FIVFIUI/FL [MINFL^I?FW A;?
     Route: 048
     Dates: start: 20140706
  2. CHLORTHALIODONE [Concomitant]
  3. BAYER HEART ASPIRIN [Concomitant]
  4. ATENOLOL. [Concomitant]
     Active Substance: ATENOLOL
  5. DIGOXIN. [Concomitant]
     Active Substance: DIGOXIN

REACTIONS (5)
  - Hypoaesthesia [None]
  - Headache [None]
  - Malaise [None]
  - Malabsorption [None]
  - Asthenia [None]

NARRATIVE: CASE EVENT DATE: 20150505
